FAERS Safety Report 6723370-8 (Version None)
Quarter: 2010Q2

REPORT INFORMATION
  Report Type: 
  Country: None (occurrence: None)
  Receive Date: 20100513
  Receipt Date: 20100428
  Transmission Date: 20101027
  Serious: Yes (Hospitalization, Other)
  Sender: FDA-Public Use
  Company Number: PHEH2007US11514

PATIENT
  Sex: Female

DRUGS (31)
  1. AREDIA [Suspect]
     Dosage: UNK
  2. ZOMETA [Suspect]
     Dosage: UNK
  3. THALIDOMIDE [Suspect]
     Indication: MULTIPLE MYELOMA
     Dosage: 400MG
  4. PAXIL [Concomitant]
     Dosage: 200 MG
  5. PREMARIN [Concomitant]
     Dosage: .625 MG
  6. VALIUM [Concomitant]
     Dosage: 5 MG
  7. SYNTHROID [Concomitant]
     Dosage: .1 MG
  8. CLINDAMYCIN [Concomitant]
     Dosage: 150 MG
  9. FUROSEMIDE [Concomitant]
     Dosage: 20 MG
  10. BLOOD AND RELATED PRODUCTS [Concomitant]
     Dosage: UNK
     Dates: start: 20011224
  11. DECADRON [Concomitant]
  12. AVELOX [Concomitant]
  13. VIOXX [Concomitant]
  14. IBUPROFEN [Concomitant]
  15. ACETAMINOPHEN [Concomitant]
  16. PEPCID COMPLETE [Concomitant]
  17. ZOFRAN [Concomitant]
  18. LORTAB [Concomitant]
  19. NALDECON [Concomitant]
  20. LOPERAMIDE HYDROCHLORIDE [Concomitant]
  21. PROCRIT                            /00909301/ [Concomitant]
  22. MELPHALAN HYDROCHLORIDE [Concomitant]
  23. PREDNISONE [Concomitant]
  24. ACYCLOVIR [Concomitant]
  25. MULTI-VITAMINS [Concomitant]
  26. CHROMAGEN [Concomitant]
  27. OXYCODONE [Concomitant]
  28. BENADRYL ^WARNER-LAMBERT^               /USA/ [Concomitant]
  29. LEVOTHYROXINE SODIUM [Concomitant]
  30. DIAZEPAM [Concomitant]
  31. PAROXETINE HCL [Concomitant]

REACTIONS (43)
  - ABSCESS [None]
  - ABSCESS DRAINAGE [None]
  - ANHEDONIA [None]
  - ANXIETY [None]
  - ASTHENIA [None]
  - BACK PAIN [None]
  - BONE DISORDER [None]
  - CATARACT NUCLEAR [None]
  - CATARACT OPERATION [None]
  - CENTRAL VENOUS CATHETERISATION [None]
  - CHEST PAIN [None]
  - DISABILITY [None]
  - DRY EYE [None]
  - DYSPNOEA [None]
  - FATIGUE [None]
  - FISTULA [None]
  - GASTRIC DISORDER [None]
  - GOITRE [None]
  - HEADACHE [None]
  - HERPES ZOSTER [None]
  - HYPOAESTHESIA [None]
  - HYPOTHYROIDISM [None]
  - INJURY [None]
  - INTERVERTEBRAL DISC DISORDER [None]
  - INTRAOCULAR LENS IMPLANT [None]
  - MUSCULOSKELETAL CHEST PAIN [None]
  - MUSCULOSKELETAL DISCOMFORT [None]
  - NEUROPATHY PERIPHERAL [None]
  - OESTROGEN DEFICIENCY [None]
  - OSTEOARTHRITIS [None]
  - OSTEOMYELITIS [None]
  - OSTEONECROSIS OF JAW [None]
  - PAIN [None]
  - PAIN IN JAW [None]
  - RETINAL DETACHMENT [None]
  - RIB FRACTURE [None]
  - SECONDARY SEQUESTRUM [None]
  - SEQUESTRECTOMY [None]
  - SINUS DISORDER [None]
  - SUPRAVENTRICULAR TACHYCARDIA [None]
  - SWELLING [None]
  - THYROID MASS [None]
  - TREMOR [None]
